FAERS Safety Report 5383042-1 (Version None)
Quarter: 2007Q3

REPORT INFORMATION
  Report Type: 
  Country: None (occurrence: None)
  Receive Date: 20070705
  Receipt Date: 20070628
  Transmission Date: 20080115
  Serious: Yes (Hospitalization, Other)
  Sender: FDA-Public Use
  Company Number: 155834ISR

PATIENT
  Age: 39 Year
  Sex: Female

DRUGS (1)
  1. COPAXONE [Suspect]
     Indication: MULTIPLE SCLEROSIS
     Dosage: 20 MG (20 MG , 1 IN 1 D)
     Route: 058
     Dates: start: 20061001, end: 20070201

REACTIONS (3)
  - DRUG INEFFECTIVE [None]
  - GUILLAIN-BARRE SYNDROME [None]
  - MULTIPLE SCLEROSIS RELAPSE [None]
